FAERS Safety Report 5433319-6 (Version None)
Quarter: 2007Q3

REPORT INFORMATION
  Report Type: 
  Country: None (occurrence: None)
  Receive Date: 20070831
  Receipt Date: 20070620
  Transmission Date: 20080115
  Serious: No
  Sender: FDA-Public Use
  Company Number: A0658182A

PATIENT
  Age: 45 Year

DRUGS (1)
  1. ALLI [Suspect]
     Route: 048
     Dates: start: 20070618

REACTIONS (4)
  - FATIGUE [None]
  - HEADACHE [None]
  - HYPOAESTHESIA [None]
  - INSOMNIA [None]
